FAERS Safety Report 6751698-4 (Version None)
Quarter: 2010Q2

REPORT INFORMATION
  Report Type: 
  Country: None (occurrence: None)
  Receive Date: 20100602
  Receipt Date: 20100524
  Transmission Date: 20101027
  Serious: Yes (Death)
  Sender: FDA-Public Use
  Company Number: B0651432A

PATIENT
  Sex: Female
  Weight: 52 kg

DRUGS (2)
  1. LAPATINIB [Suspect]
     Indication: BREAST CANCER
     Dosage: 1500MG PER DAY
     Route: 048
     Dates: start: 20090817
  2. PACLITAXEL [Suspect]
     Indication: BREAST CANCER
     Dosage: 80MGM2 WEEKLY
     Route: 042
     Dates: start: 20090817, end: 20091111

REACTIONS (4)
  - ASCITES [None]
  - HEPATIC FUNCTION ABNORMAL [None]
  - LIVER INJURY [None]
  - OCULAR ICTERUS [None]
